FAERS Safety Report 6919895-2 (Version None)
Quarter: 2010Q3

REPORT INFORMATION
  Report Type: 
  Country: None (occurrence: None)
  Receive Date: 20100811
  Receipt Date: 20100805
  Transmission Date: 20110219
  Serious: Yes (Hospitalization, Other)
  Sender: FDA-Public Use
  Company Number: A0875000A

PATIENT
  Age: 42 Year
  Sex: Female

DRUGS (29)
  1. EPOPROSTENOL [Suspect]
  2. DEMADEX [Suspect]
  3. BLINDED TRIAL MEDICATION [Concomitant]
     Indication: PULMONARY ARTERIAL HYPERTENSION
     Route: 048
     Dates: start: 20100713
  4. HYDROCHLOROTHIAZIDE [Concomitant]
  5. SPIRONOLACTONE [Concomitant]
  6. DIGOXIN [Concomitant]
  7. COUMADIN [Concomitant]
  8. SINGULAIR [Concomitant]
  9. RHINOCORT [Concomitant]
  10. PERIDEX [Concomitant]
  11. GYNE-LOTRIMIN [Concomitant]
  12. ACETAMINOPHEN [Concomitant]
  13. DOCUSATE [Concomitant]
  14. DOXYCYCLINE [Concomitant]
  15. LEVAQUIN [Concomitant]
  16. CYMBALTA [Concomitant]
  17. LUNESTA [Concomitant]
  18. ALLEGRA [Concomitant]
  19. HYDROXYZINE PAMOATE [Concomitant]
  20. LACTOBACILLUS ACIDOPHILUS [Concomitant]
  21. OSCAL [Concomitant]
  22. LANSOPRAZOLE [Concomitant]
  23. URO-MAG [Concomitant]
  24. MULTI-VITAMIN [Concomitant]
  25. POTASSIUM CHLORIDE [Concomitant]
  26. MIRAPEX [Concomitant]
  27. CARAFATE [Concomitant]
  28. ULTRAM [Concomitant]
  29. IMMUNE GLOBULIN NOS [Concomitant]

REACTIONS (3)
  - CANDIDIASIS [None]
  - DYSPHAGIA [None]
  - HYPOKALAEMIA [None]
